FAERS Safety Report 7963144-3 (Version None)
Quarter: 2011Q4

REPORT INFORMATION
  Report Type: 
  Country: None (occurrence: None)
  Receive Date: 20111207
  Receipt Date: 20061101
  Transmission Date: 20120403
  Serious: Yes (Other)
  Sender: FDA-Public Use
  Company Number: PHHY2006AR02963

PATIENT
  Age: 78 Year
  Sex: Female

DRUGS (2)
  1. CALCIUM [Concomitant]
  2. DIOVAN [Suspect]
     Indication: HYPERTENSION
     Dosage: 80 MG, BID

REACTIONS (2)
  - JOINT DISLOCATION [None]
  - FALL [None]
